FAERS Safety Report 21556467 (Version 2)
Quarter: 2022Q4

REPORT INFORMATION
  Report Type: Spontaneous
  Country: FR (occurrence: FR)
  Receive Date: 20221104
  Receipt Date: 20221117
  Transmission Date: 20230112
  Serious: Yes (Other)
  Sender: FDA-Public Use
  Company Number: FR-JNJFOC-20221101658

PATIENT

DRUGS (1)
  1. NICORETTE [Suspect]
     Active Substance: NICOTINE
     Indication: Smoking cessation therapy
     Dosage: 1 DF, QD (1 PER TIME. ONE TABLET PER DAY, 15 PILLS, 2MG)
     Route: 048
     Dates: start: 20180901

REACTIONS (8)
  - Breast cancer [Not Recovered/Not Resolved]
  - Off label use [Unknown]
  - Nightmare [Unknown]
  - Dysphonia [Unknown]
  - Headache [Unknown]
  - Throat irritation [Unknown]
  - Nicotine dependence [Not Recovered/Not Resolved]
  - Intentional product use issue [Not Recovered/Not Resolved]

NARRATIVE: CASE EVENT DATE: 20180901
